FAERS Safety Report 16672896 (Version 1)
Quarter: 2019Q3

REPORT INFORMATION
  Report Type: Spontaneous
  Country: US (occurrence: US)
  Receive Date: 20190806
  Receipt Date: 20190806
  Transmission Date: 20191004
  Serious: No
  Sender: FDA-Public Use
  Company Number: US-BAYER-2019-142852

PATIENT
  Age: 59 Year
  Sex: Female
  Weight: 74 kg

DRUGS (4)
  1. LYRICA [Concomitant]
     Active Substance: PREGABALIN
     Indication: PLANTAR FASCIITIS
     Dosage: 75 MG
     Route: 048
     Dates: start: 201612, end: 201701
  2. LYRICA [Concomitant]
     Active Substance: PREGABALIN
     Indication: PARAESTHESIA
  3. MELOXICAM. [Concomitant]
     Active Substance: MELOXICAM
     Dosage: 7.5 MG
  4. ALEVE [Suspect]
     Active Substance: NAPROXEN SODIUM
     Dosage: UNK

REACTIONS (1)
  - Drug eruption [Unknown]
